FAERS Safety Report 23996431 (Version 1)
Quarter: 2024Q2

REPORT INFORMATION
  Report Type: Spontaneous
  Country: US (occurrence: US)
  Receive Date: 20240620
  Receipt Date: 20240620
  Transmission Date: 20240716
  Serious: No
  Sender: FDA-Public Use
  Company Number: US-BRISTOL-MYERS SQUIBB COMPANY-2024-099614

PATIENT
  Age: 41 Year
  Sex: Female

DRUGS (2)
  1. SOTYKTU [Suspect]
     Active Substance: DEUCRAVACITINIB
     Indication: Psoriasis
     Route: 048
  2. SOTYKTU [Suspect]
     Active Substance: DEUCRAVACITINIB
     Indication: Rash

REACTIONS (2)
  - Vertigo [Unknown]
  - Drug ineffective [Unknown]
